FAERS Safety Report 8297763-4 (Version None)
Quarter: 2012Q1

REPORT INFORMATION
  Report Type: 
  Country: None (occurrence: None)
  Receive Date: 20120323
  Receipt Date: 20101025
  Transmission Date: 20120608
  Serious: Yes (Hospitalization)
  Sender: FDA-Public Use
  Company Number: PHHY2010US69457

PATIENT
  Age: 6 Year
  Sex: Female

DRUGS (3)
  1. GENTAMICIN [Concomitant]
  2. TOBI [Suspect]
     Indication: CYSTIC FIBROSIS
     Dosage: 300 MG, BID, INHALATION
     Route: 055
     Dates: start: 20080101
  3. TOBI [Suspect]
     Indication: BACTERIAL DISEASE CARRIER
     Dosage: 300 MG, BID, INHALATION
     Route: 055
     Dates: start: 20080101

REACTIONS (3)
  - DYSPHONIA [None]
  - SINUS OPERATION [None]
  - SINUSITIS [None]
